FAERS Safety Report 26132166 (Version 1)
Quarter: 2025Q4

REPORT INFORMATION
  Report Type: Spontaneous
  Country: CN (occurrence: CN)
  Receive Date: 20251208
  Receipt Date: 20251208
  Transmission Date: 20260118
  Serious: Yes (Hospitalization, Other)
  Sender: NOVARTIS
  Company Number: CN-002147023-NVSC2025CN187082

PATIENT
  Age: 66 Year
  Sex: Male
  Weight: 65 kg

DRUGS (8)
  1. SACUBITRIL\VALSARTAN [Suspect]
     Active Substance: SACUBITRIL\VALSARTAN
     Indication: Cardiac failure
     Dosage: 20 MG, BID
     Route: 048
     Dates: start: 20251124, end: 20251126
  2. METOPROLOL SUCCINATE [Suspect]
     Active Substance: METOPROLOL SUCCINATE
     Indication: Cardiac failure
     Dosage: 47.5 MG, QD
     Route: 048
     Dates: start: 20251124, end: 20251126
  3. IOPAMIDOL [Suspect]
     Active Substance: IOPAMIDOL
     Indication: Angiogram
     Dosage: 100 ML, QD
     Route: 037
     Dates: start: 20251126, end: 20251126
  4. SPIRONOLACTONE [Suspect]
     Active Substance: SPIRONOLACTONE
     Indication: Cardiac failure
     Dosage: 20 MG, QD
     Route: 048
     Dates: start: 20251124, end: 20251126
  5. ROSUVASTATIN CALCIUM [Concomitant]
     Active Substance: ROSUVASTATIN CALCIUM
     Indication: Lipids increased
     Dosage: 10 MG, QD
     Route: 048
     Dates: start: 20251124, end: 20251202
  6. THEOPHYLLINE [Concomitant]
     Active Substance: THEOPHYLLINE
     Indication: Dyspnoea
     Dosage: 0.1 G, BID (SUSTAINED RELEASE)
     Route: 048
     Dates: start: 20251124, end: 20251202
  7. DAPAGLIFLOZIN [Concomitant]
     Active Substance: DAPAGLIFLOZIN
     Indication: Blood glucose increased
     Dosage: 10 MG, QD
     Route: 048
     Dates: start: 20251124, end: 20251202
  8. ASPIRIN [Concomitant]
     Active Substance: ASPIRIN
     Indication: Platelet aggregation abnormal
     Dosage: 100 MG, QD
     Route: 048
     Dates: start: 20251124, end: 20251202

REACTIONS (6)
  - Chest discomfort [Recovered/Resolved]
  - Palpitations [Recovered/Resolved]
  - Injection site pruritus [Recovered/Resolved]
  - Hypotension [Recovered/Resolved]
  - Nausea [Recovered/Resolved]
  - Puncture site pruritus [Recovering/Resolving]

NARRATIVE: CASE EVENT DATE: 20251126
